FAERS Safety Report 11846805 (Version 1)
Quarter: 2015Q4

REPORT INFORMATION
  Report Type: Report from Study
  Country: ES (occurrence: ES)
  Receive Date: 20151217
  Receipt Date: 20151217
  Transmission Date: 20160305
  Serious: Yes (Death, Hospitalization)
  Sender: FDA-Public Use
  Company Number: ES-BAYER-2015-485658

PATIENT
  Age: 84 Year
  Sex: Female

DRUGS (10)
  1. ASPIRIN. [Suspect]
     Active Substance: ASPIRIN
     Indication: IMMUNE TOLERANCE INDUCTION
     Dosage: 25 MG, UNK
     Route: 048
  2. ASPIRIN. [Suspect]
     Active Substance: ASPIRIN
     Indication: IMMUNE TOLERANCE INDUCTION
     Dosage: 0.3 MG, UNK
     Route: 048
  3. ASPIRIN. [Suspect]
     Active Substance: ASPIRIN
     Indication: IMMUNE TOLERANCE INDUCTION
     Dosage: 3 MG, UNK
     Route: 048
  4. ASPIRIN. [Suspect]
     Active Substance: ASPIRIN
     Indication: IMMUNE TOLERANCE INDUCTION
     Dosage: 50 MG, UNK
     Route: 048
  5. ASPIRIN. [Suspect]
     Active Substance: ASPIRIN
     Indication: IMMUNE TOLERANCE INDUCTION
     Dosage: 0.1 MG, UNK
     Route: 048
  6. CETIRIZIN [Concomitant]
     Active Substance: CETIRIZINE HYDROCHLORIDE
     Indication: PREMEDICATION
     Dosage: 10 MG, UNK
     Route: 048
  7. ASPIRIN. [Suspect]
     Active Substance: ASPIRIN
     Indication: IMMUNE TOLERANCE INDUCTION
     Dosage: 1 MG, UNK
     Route: 048
  8. ASPIRIN. [Suspect]
     Active Substance: ASPIRIN
     Indication: IMMUNE TOLERANCE INDUCTION
     Dosage: 10 MG, UNK
     Route: 048
  9. PREDNISONE. [Concomitant]
     Active Substance: PREDNISONE
     Indication: PREMEDICATION
     Dosage: 60 MG, UNK
     Route: 048
  10. ASPIRIN. [Suspect]
     Active Substance: ASPIRIN
     Indication: IMMUNE TOLERANCE INDUCTION
     Dosage: 100 MG, UNK
     Route: 048

REACTIONS (2)
  - Drug hypersensitivity [None]
  - Myocardial rupture [Fatal]
